FAERS Safety Report 19198361 (Version 2)
Quarter: 2021Q2

REPORT INFORMATION
  Report Type: Report from Study
  Country: DE (occurrence: DE)
  Receive Date: 20210430
  Receipt Date: 20210510
  Transmission Date: 20210717
  Serious: Yes (Hospitalization)
  Sender: FDA-Public Use
  Company Number: DE-ROCHE-2817129

PATIENT
  Age: 65 Year
  Sex: Female
  Weight: 66.5 kg

DRUGS (30)
  1. L?THYROXIN [Concomitant]
     Active Substance: LEVOTHYROXINE SODIUM
     Indication: HYPOTHYROIDISM
     Dosage: 50
     Dates: start: 2014
  2. DEXAMETHASON [Concomitant]
     Active Substance: DEXAMETHASONE
     Dates: start: 20180523, end: 20180523
  3. OSMOSTERIL [Concomitant]
     Dates: start: 20180523, end: 20180731
  4. DEXAMETHASON [Concomitant]
     Active Substance: DEXAMETHASONE
     Route: 048
     Dates: start: 20180704, end: 20180704
  5. FOLSAN [Concomitant]
     Active Substance: FOLIC ACID
     Dates: start: 20180516, end: 20180516
  6. CISPLATIN. [Suspect]
     Active Substance: CISPLATIN
     Indication: NON-SMALL CELL LUNG CANCER
     Dosage: DATE OF MOST RECENT DOSE OF CISPLATIN: 31/JUL/2018
     Route: 042
     Dates: start: 20180523
  7. DEXAMETHASON [Concomitant]
     Active Substance: DEXAMETHASONE
     Route: 048
     Dates: start: 20180614, end: 20180615
  8. DEXAMETHASON [Concomitant]
     Active Substance: DEXAMETHASONE
     Route: 042
     Dates: start: 20180704, end: 20180704
  9. DEXAMETHASON [Concomitant]
     Active Substance: DEXAMETHASONE
     Route: 048
     Dates: start: 20180705, end: 20180706
  10. PRALUENT [Concomitant]
     Active Substance: ALIROCUMAB
     Indication: HYPERLIPIDAEMIA
     Dates: start: 2015
  11. DEXAMETHASON [Concomitant]
     Active Substance: DEXAMETHASONE
     Route: 042
     Dates: start: 20180523, end: 20180523
  12. DEXAMETHASON [Concomitant]
     Active Substance: DEXAMETHASONE
     Route: 042
     Dates: start: 20180613, end: 20180613
  13. EMEND [Concomitant]
     Active Substance: APREPITANT
     Dates: start: 20180523, end: 20180523
  14. ASPIRIN. [Concomitant]
     Active Substance: ASPIRIN
     Indication: CORONARY ARTERY DISEASE
     Dosage: 100
     Dates: start: 2015
  15. GRANISETRON [Concomitant]
     Active Substance: GRANISETRON
     Dates: start: 20180523, end: 20180804
  16. DEXAMETHASON [Concomitant]
     Active Substance: DEXAMETHASONE
     Route: 042
     Dates: start: 20180523, end: 20180523
  17. PEMETREXED. [Suspect]
     Active Substance: PEMETREXED
     Indication: NON-SMALL CELL LUNG CANCER
     Dosage: DATE OF MOST RECENT DOSE OF PEMETREXED: 31/JUL/2018
     Route: 042
     Dates: start: 20180523
  18. DEKRISTOL 20 000 [Concomitant]
     Indication: OSTEOPOROSIS
     Dates: start: 2015
  19. DEXAMETHASON [Concomitant]
     Active Substance: DEXAMETHASONE
     Route: 048
     Dates: start: 20180524, end: 20180525
  20. DEXAMETHASON [Concomitant]
     Active Substance: DEXAMETHASONE
     Route: 048
     Dates: start: 20180613, end: 20180613
  21. DEXAMETHASON [Concomitant]
     Active Substance: DEXAMETHASONE
     Route: 048
     Dates: start: 20180731, end: 20180731
  22. DEXAMETHASON [Concomitant]
     Active Substance: DEXAMETHASONE
     Route: 042
     Dates: start: 20180523, end: 20180523
  23. DEXAMETHASON [Concomitant]
     Active Substance: DEXAMETHASONE
     Route: 042
     Dates: start: 20180613, end: 20180613
  24. DEXAMETHASON [Concomitant]
     Active Substance: DEXAMETHASONE
     Route: 042
     Dates: start: 20180731, end: 20180731
  25. DEXAMETHASON [Concomitant]
     Active Substance: DEXAMETHASONE
     Route: 048
     Dates: start: 20180801, end: 20180801
  26. NITROFURANTOIN. [Concomitant]
     Active Substance: NITROFURANTOIN
     Indication: URINARY TRACT INFECTION
     Dates: start: 20151111
  27. ATEZOLIZUMAB. [Suspect]
     Active Substance: ATEZOLIZUMAB
     Indication: NON-SMALL CELL LUNG CANCER
     Dosage: DATE OF MOST RECENT DOSE OF ATEZOLIZUMAB: 06/JUL/2021?DATE OF MOST RECENT DOSE OF ATEZOLIZUMAB PRIOR
     Route: 042
     Dates: start: 20180904
  28. MAGNESIUM [Concomitant]
     Active Substance: MAGNESIUM
     Dates: start: 20180523, end: 20180731
  29. DEXAMETHASON [Concomitant]
     Active Substance: DEXAMETHASONE
     Route: 042
     Dates: start: 20180704, end: 20180704
  30. HEPARIN [Concomitant]
     Active Substance: HEPARIN SODIUM
     Dosage: 30
     Dates: start: 20181022, end: 20181218

REACTIONS (1)
  - Hepatitis E [Not Recovered/Not Resolved]

NARRATIVE: CASE EVENT DATE: 20210415
